FAERS Safety Report 5663103-X (Version None)
Quarter: 2008Q1

REPORT INFORMATION
  Report Type: 
  Country: None (occurrence: None)
  Receive Date: 20080313
  Receipt Date: 20080306
  Transmission Date: 20080703
  Serious: Yes (Other)
  Sender: FDA-Public Use
  Company Number: A0713854A

PATIENT
  Age: 65 Year
  Sex: Female

DRUGS (5)
  1. REQUIP [Suspect]
     Indication: PARKINSON'S DISEASE
     Dosage: .5MG TWICE PER DAY
     Route: 048
     Dates: start: 20080226
  2. RISPERDAL [Concomitant]
  3. ARICEPT [Concomitant]
  4. UNSPECIFIED MEDICATION [Concomitant]
  5. ALTACE [Concomitant]

REACTIONS (1)
  - HALLUCINATION [None]
